FAERS Safety Report 6617559-6 (Version None)
Quarter: 2010Q1

REPORT INFORMATION
  Report Type: 
  Country: None (occurrence: None)
  Receive Date: 20100308
  Receipt Date: 20100303
  Transmission Date: 20100710
  Serious: Yes (Hospitalization)
  Sender: FDA-Public Use
  Company Number: US-KINGPHARMUSA00001-K201000247

PATIENT
  Age: 50 Year
  Sex: Male

DRUGS (8)
  1. SKELAXIN [Suspect]
     Dosage: UNK
     Dates: start: 20090601, end: 20090601
  2. VALIUM [Suspect]
     Dosage: UNK
     Dates: start: 20090601, end: 20090601
  3. DILAUDID [Suspect]
     Dosage: UNK
     Dates: start: 20090601, end: 20090601
  4. FLEXERIL [Suspect]
     Dosage: UNK
     Dates: start: 20090601, end: 20090601
  5. PERCOCET [Suspect]
     Dosage: UNK
     Dates: start: 20090601, end: 20090601
  6. LYRICA [Suspect]
     Dosage: UNK
     Dates: start: 20090601, end: 20090601
  7. AVONEX [Suspect]
     Indication: MULTIPLE SCLEROSIS
     Dosage: UNK
     Dates: start: 19990408
  8. AVONEX [Suspect]
     Dosage: UNK
     Dates: end: 20090409

REACTIONS (4)
  - BURNING SENSATION [None]
  - COMA [None]
  - DEAFNESS [None]
  - MULTIPLE SCLEROSIS RELAPSE [None]
